FAERS Safety Report 22297488 (Version 3)
Quarter: 2023Q2

REPORT INFORMATION
  Report Type: Spontaneous
  Country: US (occurrence: US)
  Receive Date: 20230509
  Receipt Date: 20230629
  Transmission Date: 20230722
  Serious: No
  Sender: FDA-Public Use
  Company Number: US-BIOGEN-2023BI01201238

PATIENT
  Age: 29 Year
  Sex: Female

DRUGS (6)
  1. VUMERITY [Suspect]
     Active Substance: DIROXIMEL FUMARATE
     Indication: Multiple sclerosis
     Route: 050
  2. VUMERITY [Suspect]
     Active Substance: DIROXIMEL FUMARATE
     Route: 050
     Dates: start: 20200915, end: 20210219
  3. VUMERITY [Suspect]
     Active Substance: DIROXIMEL FUMARATE
     Route: 050
     Dates: start: 20230418, end: 20230424
  4. VUMERITY [Suspect]
     Active Substance: DIROXIMEL FUMARATE
     Route: 050
     Dates: start: 20230425
  5. VUMERITY [Suspect]
     Active Substance: DIROXIMEL FUMARATE
     Route: 050
     Dates: start: 2023
  6. IBUPROFEN [Concomitant]
     Active Substance: IBUPROFEN
     Route: 050

REACTIONS (6)
  - Flushing [Unknown]
  - Underdose [Unknown]
  - Paraesthesia [Recovered/Resolved]
  - Skin burning sensation [Recovered/Resolved]
  - Rhinorrhoea [Recovered/Resolved]
  - Foot deformity [Unknown]

NARRATIVE: CASE EVENT DATE: 20230503
